FAERS Safety Report 11245223 (Version 3)
Quarter: 2022Q2

REPORT INFORMATION
  Report Type: Spontaneous
  Country: AU (occurrence: AU)
  Receive Date: 20150707
  Receipt Date: 20220627
  Transmission Date: 20220721
  Serious: Yes (Life-Threatening, Hospitalization, Other)
  Sender: FDA-Public Use
  Company Number: AU-BAXTER-2015BAX034489

PATIENT
  Age: 25 Year
  Sex: Female
  Weight: 61 kg

DRUGS (17)
  1. SEVOFLURANE [Suspect]
     Active Substance: SEVOFLURANE
     Indication: General anaesthesia
     Dosage: MINIMUM ALVEOLAR CONCENTRATION VALUE OF 1.0
     Route: 055
  2. SODIUM CHLORIDE [Suspect]
     Active Substance: SODIUM CHLORIDE
     Indication: Irrigation therapy
     Dosage: 20 L, PRN AT 16 WEEKS OF GESTATION PERIOD
     Route: 042
  3. SODIUM CHLORIDE [Suspect]
     Active Substance: SODIUM CHLORIDE
     Dosage: UNK
     Route: 042
  4. LACTATED RINGERS SOLUTION [Suspect]
     Active Substance: CALCIUM CHLORIDE\POTASSIUM CHLORIDE\SODIUM CHLORIDE\SODIUM LACTATE
     Indication: Diuretic therapy
     Dosage: 1000 ML,PRN
     Route: 042
  5. MIDAZOLAM [Suspect]
     Active Substance: MIDAZOLAM
     Indication: Sedative therapy
     Dosage: 5 MILLIGRAM,PRN
     Route: 042
  6. FENTANYL [Suspect]
     Active Substance: FENTANYL
     Indication: Sedative therapy
     Dosage: TOTAL OF 100 UG IN INCREMENTAL DOSES
     Route: 042
  7. INDOMETHACIN [Suspect]
     Active Substance: INDOMETHACIN
     Indication: Tocolysis
     Dosage: 50 MILLIGRAM,PRN, AT 16 WEEKS OF GESTATION
     Route: 054
  8. BUPIVACAINE HYDROCHLORIDE\EPINEPHRINE BITARTRATE [Suspect]
     Active Substance: BUPIVACAINE HYDROCHLORIDE\EPINEPHRINE BITARTRATE
     Indication: Infiltration anaesthesia
     Dosage: UNK
     Route: 065
  9. PROPOFOL [Suspect]
     Active Substance: PROPOFOL
     Indication: Sedative therapy
     Dosage: 5 MG/KG,1X AN HOUR
     Route: 042
  10. PROPOFOL [Suspect]
     Active Substance: PROPOFOL
     Indication: Endotracheal intubation
     Dosage: 100 MILLIGRAM,PRN
     Route: 040
  11. PROPOFOL [Suspect]
     Active Substance: PROPOFOL
     Dosage: 100 MILLIGRAM,PRN
     Route: 042
  12. SUCCINYLCHOLINE [Suspect]
     Active Substance: SUCCINYLCHOLINE
     Indication: Endotracheal intubation
     Dosage: 100 MILLIGRAM,PRN
     Route: 042
  13. SUCCINYLCHOLINE [Suspect]
     Active Substance: SUCCINYLCHOLINE
     Dosage: 100 MILLIGRAM,PRN
     Route: 042
  14. FUROSEMIDE [Suspect]
     Active Substance: FUROSEMIDE
     Indication: Pulmonary oedema
     Dosage: 40 MILLIGRAM,PRN
     Route: 042
  15. CALCIUM CHLORIDE\POTASSIUM CHLORIDE\SODIUM CHLORIDE\SODIUM LACTATE [Suspect]
     Active Substance: CALCIUM CHLORIDE\POTASSIUM CHLORIDE\SODIUM CHLORIDE\SODIUM LACTATE
     Dosage: 1000 ML, AT 16 WEEKS OF GESTATION PERIOD
     Route: 042
  16. OXYGEN [Concomitant]
     Active Substance: OXYGEN
     Indication: Product used for unknown indication
     Dosage: 6 LITERS,CONTINUOUS
     Route: 065
  17. EPINEPHRINE [Concomitant]
     Active Substance: EPINEPHRINE
     Indication: Infiltration anaesthesia
     Route: 065

REACTIONS (8)
  - Exposure during pregnancy [Recovered/Resolved]
  - Pulmonary oedema [Recovered/Resolved]
  - Foetal death [Recovered/Resolved]
  - Respiratory acidosis [Recovered/Resolved]
  - Acidosis hyperchloraemic [Recovered/Resolved]
  - Oxygen saturation decreased [Recovered/Resolved]
  - Metabolic acidosis [Recovered/Resolved]
  - Haemoglobin decreased [Recovered/Resolved]
